FAERS Safety Report 18266829 (Version 1)
Quarter: 2020Q3

REPORT INFORMATION
  Report Type: Spontaneous
  Country: US (occurrence: US)
  Receive Date: 20200914
  Receipt Date: 20200914
  Transmission Date: 20201103
  Serious: No
  Sender: FDA-Public Use
  Company Number: None

PATIENT

DRUGS (1)
  1. BERSIH HAND SANITIZER [Suspect]
     Active Substance: ALCOHOL
     Indication: CORONAVIRUS INFECTION
     Dates: start: 202006, end: 202006

REACTIONS (2)
  - Synovial cyst [None]
  - Infected cyst [None]

NARRATIVE: CASE EVENT DATE: 20200605
